FAERS Safety Report 12584340 (Version 1)
Quarter: 2016Q3

REPORT INFORMATION
  Report Type: Spontaneous
  Country: SI (occurrence: SI)
  Receive Date: 20160722
  Receipt Date: 20160722
  Transmission Date: 20161109
  Serious: Yes (Hospitalization, Other)
  Sender: FDA-Public Use
  Company Number: SI-WATSON-2016-15910

PATIENT
  Age: 19 Year
  Sex: Female

DRUGS (3)
  1. CANNABIS [Interacting]
     Active Substance: CANNABIS SATIVA SUBSP. INDICA TOP
  2. PALIPERIDONE (ACTAVIS LABORATORIES FL, INC.) [Suspect]
     Active Substance: PALIPERIDONE
     Indication: SCHIZOPHRENIA
     Dosage: 18 MG, UNK
     Route: 048
  3. OLANZAPINE. [Interacting]
     Active Substance: OLANZAPINE
     Indication: SCHIZOPHRENIA
     Dosage: 300 MG, UNK
     Route: 030

REACTIONS (5)
  - Delirium [Recovered/Resolved]
  - Accidental overdose [Unknown]
  - Anticholinergic syndrome [Recovered/Resolved]
  - Potentiating drug interaction [Unknown]
  - Confusional state [Recovered/Resolved]
